FAERS Safety Report 9549807 (Version 2)
Quarter: 2013Q3

REPORT INFORMATION
  Report Type: Spontaneous
  Country: US (occurrence: US)
  Receive Date: 20130924
  Receipt Date: 20130924
  Transmission Date: 20140515
  Serious: No
  Sender: FDA-Public Use
  Company Number: US-009507513-1211USA012298

PATIENT
  Age: 35 Year
  Sex: Female

DRUGS (4)
  1. ISENTRESS [Suspect]
     Indication: HIV INFECTION
     Dosage: 400 MG, BID
     Route: 048
     Dates: start: 20121121
  2. REYATAZ [Concomitant]
     Route: 048
  3. NORVIR [Concomitant]
     Route: 048
  4. TRUVADA [Concomitant]
     Route: 048

REACTIONS (1)
  - Exposure during pregnancy [Unknown]
